FAERS Safety Report 13652779 (Version 1)
Quarter: 2017Q2

REPORT INFORMATION
  Report Type: Spontaneous
  Country: US (occurrence: US)
  Receive Date: 20170614
  Receipt Date: 20170614
  Transmission Date: 20170830
  Serious: No
  Sender: FDA-Public Use
  Company Number: US-ROCHE-1018652

PATIENT
  Age: 55 Year
  Sex: Female
  Weight: 52.7 kg

DRUGS (9)
  1. PENTASA [Concomitant]
     Active Substance: MESALAMINE
  2. VITAMIN D [Concomitant]
     Active Substance: CHOLECALCIFEROL
  3. XANAX [Concomitant]
     Active Substance: ALPRAZOLAM
  4. B12 COMPLEX [Concomitant]
  5. MVI [Concomitant]
     Active Substance: VITAMINS
  6. COMPAZINE [Concomitant]
     Active Substance: PROCHLORPERAZINE MALEATE
  7. XELODA [Suspect]
     Active Substance: CAPECITABINE
     Indication: BREAST CANCER METASTATIC
     Route: 048
     Dates: start: 20111011
  8. LORTAB [Concomitant]
     Active Substance: ACETAMINOPHEN\HYDROCODONE BITARTRATE
  9. FISH OIL [Concomitant]
     Active Substance: FISH OIL

REACTIONS (1)
  - Nausea [Unknown]

NARRATIVE: CASE EVENT DATE: 20111017
